FAERS Safety Report 8259093-6 (Version None)
Quarter: 2012Q2

REPORT INFORMATION
  Report Type: 
  Country: None (occurrence: None)
  Receive Date: 20120404
  Receipt Date: 20120328
  Transmission Date: 20120825
  Serious: Yes (Other)
  Sender: FDA-Public Use
  Company Number: US-ROCHE-1054392

PATIENT
  Sex: Male
  Weight: 68.1 kg

DRUGS (6)
  1. DEPAKOTE [Concomitant]
  2. HYDROXYZINE [Concomitant]
     Dates: start: 20111220, end: 20120218
  3. SODIUM CHLORIDE [Concomitant]
     Dates: start: 20120109, end: 20120109
  4. TRIAMCINOLONE ACETONIDE [Concomitant]
     Dates: start: 20111220, end: 20120218
  5. VEMURAFENIB [Suspect]
     Indication: METASTATIC MALIGNANT MELANOMA
     Dates: start: 20111130
  6. DEPAKOTE ER [Concomitant]

REACTIONS (1)
  - TONGUE NEOPLASM MALIGNANT STAGE UNSPECIFIED [None]
